FAERS Safety Report 7558032-0 (Version None)
Quarter: 2011Q2

REPORT INFORMATION
  Report Type: 
  Country: None (occurrence: None)
  Receive Date: 20110620
  Receipt Date: 20110607
  Transmission Date: 20111010
  Serious: Yes (Hospitalization)
  Sender: FDA-Public Use
  Company Number: PHHY2011CA50210

PATIENT

DRUGS (8)
  1. GABAPENTIN [Suspect]
  2. FUROSEMIDE [Suspect]
  3. QUETIAPINE [Suspect]
  4. METHADONE HCL [Suspect]
  5. CITALOPRAM HYDROBROMIDE [Suspect]
  6. ACETAMINOPHEN [Suspect]
  7. TRAZODONE HCL [Suspect]
  8. ACETYLCYSTEINE [Suspect]

REACTIONS (14)
  - BLOOD UREA INCREASED [None]
  - BODY MASS INDEX DECREASED [None]
  - BODY TEMPERATURE DECREASED [None]
  - RESPIRATORY RATE INCREASED [None]
  - WHITE BLOOD CELL COUNT INCREASED [None]
  - ANALGESIC DRUG LEVEL INCREASED [None]
  - BLOOD CREATININE INCREASED [None]
  - METABOLIC ACIDOSIS [None]
  - ANION GAP INCREASED [None]
  - BLOOD POTASSIUM DECREASED [None]
  - BLOOD OSMOLARITY INCREASED [None]
  - BLOOD PRESSURE DECREASED [None]
  - TACHYPNOEA [None]
  - TRANSAMINASES INCREASED [None]
